FAERS Safety Report 23479605 (Version 1)
Quarter: 2024Q1

REPORT INFORMATION
  Report Type: Spontaneous
  Country: US (occurrence: US)
  Receive Date: 20240205
  Receipt Date: 20240205
  Transmission Date: 20240410
  Serious: No
  Sender: FDA-Public Use
  Company Number: US-UCBSA-2022072116

PATIENT
  Sex: Female

DRUGS (2)
  1. KEPPRA [Suspect]
     Active Substance: LEVETIRACETAM
     Indication: Product used for unknown indication
     Dosage: UNK
  2. PAXLOVID [Suspect]
     Active Substance: NIRMATRELVIR\RITONAVIR
     Indication: Product used for unknown indication
     Dosage: UNK

REACTIONS (7)
  - Complex regional pain syndrome [Unknown]
  - Tremor [Unknown]
  - Gait disturbance [Unknown]
  - Taste disorder [Unknown]
  - Thirst [Unknown]
  - Dry mouth [Unknown]
  - Contraindicated product administered [Unknown]
